FAERS Safety Report 23390208 (Version 1)
Quarter: 2024Q1

REPORT INFORMATION
  Report Type: Spontaneous
  Country: KR (occurrence: KR)
  Receive Date: 20240111
  Receipt Date: 20240111
  Transmission Date: 20240410
  Serious: Yes (Other)
  Sender: FDA-Public Use
  Company Number: KR-RDY-LIT/KOR/24/0000199

PATIENT
  Age: 74 Year
  Sex: Female

DRUGS (4)
  1. AZACITIDINE [Suspect]
     Active Substance: AZACITIDINE
     Indication: Acute myeloid leukaemia
  2. DECITABINE [Suspect]
     Active Substance: DECITABINE
     Indication: Acute myeloid leukaemia
  3. VENETOCLAX [Suspect]
     Active Substance: VENETOCLAX
     Indication: Acute myeloid leukaemia
  4. IMATINIB [Suspect]
     Active Substance: IMATINIB
     Indication: Product used for unknown indication

REACTIONS (2)
  - Treatment failure [Unknown]
  - Acute myeloid leukaemia [Unknown]
